FAERS Safety Report 4589828-5 (Version None)
Quarter: 2005Q1

REPORT INFORMATION
  Report Type: 
  Country: None (occurrence: None)
  Receive Date: 20050223
  Receipt Date: 20050215
  Transmission Date: 20050727
  Serious: Yes (Death, Hospitalization)
  Sender: FDA-Public Use
  Company Number: DE-ABBOTT-05P-062-0291393-00

PATIENT
  Age: 83 Year
  Sex: Female

DRUGS (1)
  1. TRANDOLAPRIL [Suspect]
     Indication: DRUG USE FOR UNKNOWN INDICATION

REACTIONS (10)
  - CARDIAC FAILURE [None]
  - HEPATIC ENZYME INCREASED [None]
  - HYPERGLYCAEMIA [None]
  - HYPOKALAEMIA [None]
  - LEUKOCYTOSIS [None]
  - PANCREATITIS NECROTISING [None]
  - PNEUMONIA [None]
  - RED BLOOD CELL SEDIMENTATION RATE INCREASED [None]
  - RESPIRATORY FAILURE [None]
  - SHOCK [None]
